FAERS Safety Report 8560825-8 (Version None)
Quarter: 2012Q3

REPORT INFORMATION
  Report Type: 
  Country: None (occurrence: None)
  Receive Date: 20120802
  Receipt Date: 20120730
  Transmission Date: 20120928
  Serious: Yes (Other)
  Sender: FDA-Public Use
  Company Number: US-FRI-1000037450

PATIENT
  Age: 28 Year
  Sex: Male

DRUGS (8)
  1. CLONIDINE [Suspect]
     Indication: HYPERTENSION
     Dosage: 0.1 MG
  2. TOPIRAMATE [Suspect]
     Dosage: 200 MG
  3. TOPIRAMATE [Suspect]
     Indication: COMPLEX PARTIAL SEIZURES
     Dosage: 50 MG
     Dates: start: 20100801
  4. DIVALPROEX SODIUM [Concomitant]
     Indication: INTERMITTENT EXPLOSIVE DISORDER
     Dosage: 1000 MG AT BEDTIME
  5. AMPHETAMINE AND DEXTROAMPHETAMINE SALTS [Concomitant]
     Indication: ATTENTION DEFICIT/HYPERACTIVITY DISORDER
     Dosage: 60 MG
  6. PROPRANOLOL HCL [Suspect]
     Indication: HYPERTENSION
     Dosage: 60 MG
  7. TOPIRAMATE [Suspect]
     Dosage: 100 MG
  8. DIVALPROEX SODIUM [Concomitant]
     Dosage: 500 MG IN THE MORNING, 750 MG AT BEDTIME

REACTIONS (6)
  - DRUG LEVEL INCREASED [None]
  - ABNORMAL BEHAVIOUR [None]
  - COMPLEX PARTIAL SEIZURES [None]
  - AGGRESSION [None]
  - HYPOTENSION [None]
  - DISSOCIATION [None]
